FAERS Safety Report 7995260-4 (Version None)
Quarter: 2011Q4

REPORT INFORMATION
  Report Type: 
  Country: None (occurrence: None)
  Receive Date: 20111220
  Receipt Date: 20111220
  Transmission Date: 20120403
  Serious: No
  Sender: FDA-Public Use
  Company Number: None

PATIENT
  Age: 65 Year
  Sex: Female
  Weight: 97.522 kg

DRUGS (1)
  1. MELOXICAM [Suspect]
     Indication: ARTHRITIS
     Route: 048
     Dates: start: 20111216, end: 20111218

REACTIONS (4)
  - PAIN IN EXTREMITY [None]
  - CHEST PAIN [None]
  - PAIN [None]
  - PAIN IN JAW [None]
